FAERS Safety Report 15737992 (Version 2)
Quarter: 2019Q1

REPORT INFORMATION
  Report Type: Spontaneous
  Country: FI (occurrence: FI)
  Receive Date: 20181219
  Receipt Date: 20190125
  Transmission Date: 20190417
  Serious: Yes (Death, Hospitalization)
  Sender: FDA-Public Use
  Company Number: FI-BIOGEN-2018BI00672220

PATIENT
  Age: 2 Year

DRUGS (1)
  1. SPINRAZA [Suspect]
     Active Substance: NUSINERSEN
     Indication: SPINAL MUSCULAR ATROPHY
     Route: 065
     Dates: start: 20180419, end: 20181010

REACTIONS (4)
  - Cardiac failure [Fatal]
  - Human bocavirus infection [Fatal]
  - Pneumonia bacterial [Fatal]
  - Respiratory failure [Fatal]

NARRATIVE: CASE EVENT DATE: 20181023
